FAERS Safety Report 14356425 (Version 1)
Quarter: 2018Q1

REPORT INFORMATION
  Report Type: Spontaneous
  Country: US (occurrence: US)
  Receive Date: 20180105
  Receipt Date: 20180105
  Transmission Date: 20180509
  Serious: No
  Sender: FDA-Public Use
  Company Number: US-ALLERGAN-1719042US

PATIENT
  Age: 42 Year
  Sex: Female
  Weight: 58.96 kg

DRUGS (1)
  1. KYBELLA [Suspect]
     Active Substance: DEOXYCHOLIC ACID
     Indication: FAT TISSUE INCREASED
     Dosage: 2 DF, SINGLE
     Route: 058
     Dates: start: 20170420, end: 20170420

REACTIONS (5)
  - Hypoaesthesia oral [Unknown]
  - Speech disorder [Recovering/Resolving]
  - Injection site pain [Unknown]
  - Lip disorder [Not Recovered/Not Resolved]
  - Facial paresis [Not Recovered/Not Resolved]

NARRATIVE: CASE EVENT DATE: 20170420
